FAERS Safety Report 13484281 (Version 1)
Quarter: 2017Q2

REPORT INFORMATION
  Report Type: Spontaneous
  Country: US (occurrence: US)
  Receive Date: 20170425
  Receipt Date: 20170425
  Transmission Date: 20170830
  Serious: No
  Sender: FDA-Public Use
  Company Number: None

PATIENT
  Age: 65 Year
  Sex: Female

DRUGS (1)
  1. HUMIRA [Suspect]
     Active Substance: ADALIMUMAB
     Indication: ARTHRITIS
     Route: 058
     Dates: start: 20170330

REACTIONS (10)
  - Paraesthesia [None]
  - Headache [None]
  - Vision blurred [None]
  - Urinary retention [None]
  - Hypoaesthesia [None]
  - Nausea [None]
  - Arthralgia [None]
  - Dizziness [None]
  - Tremor [None]
  - Myalgia [None]

NARRATIVE: CASE EVENT DATE: 20170330
